FAERS Safety Report 5000949-5 (Version None)
Quarter: 2006Q2

REPORT INFORMATION
  Report Type: 
  Country: None (occurrence: None)
  Receive Date: 20060512
  Receipt Date: 20050812
  Transmission Date: 20061013
  Serious: Yes (Hospitalization, Disabling)
  Sender: FDA-Public Use
  Company Number: US-ROCHE-414410

PATIENT
  Age: 20 Year
  Sex: Female
  Weight: 69.9 kg

DRUGS (2)
  1. ACCUTANE [Suspect]
     Indication: ACNE
     Route: 048
     Dates: start: 19990825, end: 20000110
  2. ACCUTANE [Suspect]
     Route: 048
     Dates: start: 19990721, end: 19990824

REACTIONS (76)
  - ABDOMINAL PAIN [None]
  - ABDOMINAL PAIN UPPER [None]
  - ALANINE AMINOTRANSFERASE DECREASED [None]
  - ALOPECIA [None]
  - ANHEDONIA [None]
  - ANXIETY [None]
  - APHTHOUS STOMATITIS [None]
  - ARTHRALGIA [None]
  - BACK PAIN [None]
  - BREAST MASS [None]
  - BREAST PAIN [None]
  - BRONCHITIS VIRAL [None]
  - CANDIDIASIS [None]
  - CERVICAL DYSPLASIA [None]
  - COLITIS [None]
  - CONDITION AGGRAVATED [None]
  - CONSTIPATION [None]
  - CROHN'S DISEASE [None]
  - DENTAL PROSTHESIS USER [None]
  - DEPRESSION [None]
  - DRUG INEFFECTIVE [None]
  - DRY SKIN [None]
  - DYSPAREUNIA [None]
  - ECONOMIC PROBLEM [None]
  - EMOTIONAL DISTRESS [None]
  - EPISTAXIS [None]
  - FAECES DISCOLOURED [None]
  - FEELING ABNORMAL [None]
  - GASTRIC DISORDER [None]
  - GASTRITIS [None]
  - GASTROENTERITIS VIRAL [None]
  - GASTROINTESTINAL DISORDER [None]
  - GASTROOESOPHAGEAL REFLUX DISEASE [None]
  - HAEMATOCHEZIA [None]
  - HAEMATOCRIT DECREASED [None]
  - HAEMORRHOIDS [None]
  - HAND FRACTURE [None]
  - HOT FLUSH [None]
  - INFLAMMATION [None]
  - INFLAMMATORY BOWEL DISEASE [None]
  - INGROWING NAIL [None]
  - INJURY [None]
  - INSOMNIA [None]
  - INTESTINAL HAEMORRHAGE [None]
  - IRRITABLE BOWEL SYNDROME [None]
  - LARYNGITIS [None]
  - LIBIDO DECREASED [None]
  - LIP DRY [None]
  - LYMPHOCYTE PERCENTAGE INCREASED [None]
  - MENSTRUATION IRREGULAR [None]
  - MIGRAINE [None]
  - MONOCYTE PERCENTAGE INCREASED [None]
  - MOOD SWINGS [None]
  - MUSCLE SPASMS [None]
  - MYALGIA [None]
  - MYCOPLASMA INFECTION [None]
  - NAUSEA [None]
  - NEUTROPHIL PERCENTAGE DECREASED [None]
  - OESOPHAGITIS ULCERATIVE [None]
  - ORAL CANDIDIASIS [None]
  - PELVIC PAIN [None]
  - PHARYNGITIS [None]
  - PHARYNGITIS STREPTOCOCCAL [None]
  - PROCTALGIA [None]
  - PURPURA [None]
  - RECTAL HAEMORRHAGE [None]
  - RED BLOOD CELL COUNT DECREASED [None]
  - RED CELL DISTRIBUTION WIDTH INCREASED [None]
  - SKIN DISORDER [None]
  - STRESS [None]
  - TEMPOROMANDIBULAR JOINT SYNDROME [None]
  - TENSION HEADACHE [None]
  - VESTIBULITIS [None]
  - VIRAL INFECTION [None]
  - VOMITING [None]
  - WEIGHT DECREASED [None]
